FAERS Safety Report 9049028 (Version 1)
Quarter: 2013Q1

REPORT INFORMATION
  Report Type: Spontaneous
  Country: US (occurrence: None)
  Receive Date: 20130129
  Receipt Date: 20130129
  Transmission Date: 20140127
  Serious: Yes (Other)
  Sender: FDA-Public Use
  Company Number: None

PATIENT
  Age: 43 Year
  Sex: Female
  Weight: 59.42 kg

DRUGS (1)
  1. TOPIRAMATE 50 MG [Suspect]
     Indication: MIGRAINE
     Dosage: 1 TAB 2 TIMES/DAY?2/18/11  -
     Dates: start: 20110218

REACTIONS (1)
  - Alopecia [None]
